FAERS Safety Report 23091260 (Version 2)
Quarter: 2024Q3

REPORT INFORMATION
  Report Type: Report from Study
  Country: CA (occurrence: CA)
  Receive Date: 20231020
  Receipt Date: 20240919
  Transmission Date: 20241017
  Serious: Yes (Other)
  Sender: PFIZER
  Company Number: CA-PFIZER INC-202300331168

PATIENT
  Age: 65 Year
  Sex: Female

DRUGS (4)
  1. METHOTREXATE SODIUM [Suspect]
     Active Substance: METHOTREXATE SODIUM
     Dosage: 20 MG, WEEKLY
     Route: 058
  2. ERELZI [Suspect]
     Active Substance: ETANERCEPT-SZZS
     Indication: Psoriatic arthropathy
     Dosage: 50 MG, WEEKLY
     Route: 058
  3. ENBREL [Concomitant]
     Active Substance: ETANERCEPT
     Dosage: 50 MG, WEEKLY
     Route: 058
  4. PLAQUENIL [Concomitant]
     Active Substance: HYDROXYCHLOROQUINE SULFATE
     Dosage: 200 MG, DAILY
     Route: 048

REACTIONS (19)
  - Arthralgia [Recovered/Resolved]
  - COVID-19 [Recovered/Resolved]
  - Diarrhoea [Recovered/Resolved]
  - Dizziness [Recovered/Resolved]
  - Injection site pain [Recovered/Resolved]
  - Labyrinthitis [Recovered/Resolved]
  - Nausea [Recovered/Resolved]
  - Nodule [Recovered/Resolved]
  - Urinary tract infection [Recovered/Resolved]
  - Abdominal pain [Recovered/Resolved]
  - Fall [Recovered/Resolved]
  - Cataract [Recovered/Resolved]
  - Deafness [Recovered/Resolved]
  - Electric shock sensation [Recovered/Resolved]
  - Groin pain [Recovered/Resolved]
  - Hypoacusis [Recovered/Resolved]
  - Neoplasm [Recovered/Resolved]
  - Neuralgia [Recovered/Resolved]
  - Periarthritis [Recovered/Resolved]
